FAERS Safety Report 20416515 (Version 1)
Quarter: 2022Q1

REPORT INFORMATION
  Report Type: Spontaneous
  Country: US (occurrence: None)
  Receive Date: 20220201
  Receipt Date: 20220201
  Transmission Date: 20220423
  Serious: Yes (Disabling)
  Sender: FDA-Public Use
  Company Number: None

PATIENT
  Age: 38 Year
  Sex: Female
  Weight: 103.5 kg

DRUGS (6)
  1. SULFAMETHOXAZOLE\TRIMETHOPRIM [Suspect]
     Active Substance: SULFAMETHOXAZOLE\TRIMETHOPRIM
     Indication: Urinary tract infection
     Dosage: OTHER QUANTITY : 1 TABLET(S);?FREQUENCY : EVERY 12 HOURS;?
     Route: 048
     Dates: start: 20220128, end: 20220201
  2. IC Guanfacine HCL ER 3 mg tablet [Concomitant]
  3. IC Sertraline HCL 50 mg [Concomitant]
  4. CLARITIN-D NOS [Concomitant]
     Active Substance: LORATADINE\PSEUDOEPHEDRINE SULFATE
  5. fertility supplements [Concomitant]
  6. VITAMINS [Concomitant]
     Active Substance: VITAMINS

REACTIONS (6)
  - Diarrhoea [None]
  - Anal incontinence [None]
  - Oral candidiasis [None]
  - Glossodynia [None]
  - Vulvovaginal pruritus [None]
  - Constipation [None]

NARRATIVE: CASE EVENT DATE: 20220201
